FAERS Safety Report 23782496 (Version 1)
Quarter: 2024Q2

REPORT INFORMATION
  Report Type: Spontaneous
  Country: IT (occurrence: IT)
  Receive Date: 20240425
  Receipt Date: 20240425
  Transmission Date: 20240715
  Serious: Yes (Hospitalization, Other)
  Sender: FDA-Public Use
  Company Number: IT-EMA-DD-20240205-7482655-100751

PATIENT
  Age: 74 Year
  Sex: Female
  Weight: 63 kg

DRUGS (11)
  1. GEMCITABINE [Suspect]
     Active Substance: GEMCITABINE
     Indication: Ductal adenocarcinoma of pancreas
     Dosage: 1000 MILLIGRAM/SQ. METER, OTHER
     Route: 040
     Dates: start: 20230125
  2. GEMCITABINE [Suspect]
     Active Substance: GEMCITABINE
     Dosage: 1700 MILLIGRAM, OTHER
     Route: 040
     Dates: start: 20221215, end: 20230124
  3. SPARTALIZUMAB [Suspect]
     Active Substance: SPARTALIZUMAB
     Indication: Ductal adenocarcinoma of pancreas
     Dosage: 400 MILLIGRAM, 1DOSE/4WEEKS
     Route: 042
     Dates: start: 20221215, end: 20230124
  4. SPARTALIZUMAB [Suspect]
     Active Substance: SPARTALIZUMAB
     Dosage: UNK UNK, Q4W
     Route: 042
     Dates: start: 20230115
  5. PACLITAXEL [Suspect]
     Active Substance: PACLITAXEL
     Indication: Ductal adenocarcinoma of pancreas
     Dosage: 212 MILLIGRAM, OTHER
     Route: 040
     Dates: start: 20221215, end: 20230124
  6. PACLITAXEL [Suspect]
     Active Substance: PACLITAXEL
     Dosage: 125 MILLIGRAM/SQ. METER, QW
     Route: 040
     Dates: start: 20230125
  7. MOVICOL [Concomitant]
     Active Substance: POLYETHYLENE GLYCOL 3350\POTASSIUM CHLORIDE\SODIUM BICARBONATE\SODIUM CHLORIDE
     Indication: Constipation
     Dosage: UNK
     Route: 065
     Dates: start: 20221215
  8. FENTANYL [Concomitant]
     Active Substance: FENTANYL\FENTANYL CITRATE
     Indication: Pain
     Dosage: UNK
     Route: 065
     Dates: start: 2022
  9. GRANISETRON [Concomitant]
     Active Substance: GRANISETRON
     Indication: Chemotherapy side effect prophylaxis
     Dosage: UNK
     Route: 065
     Dates: start: 20221215
  10. DEXAMETHASONE [Concomitant]
     Active Substance: DEXAMETHASONE
     Indication: Chemotherapy side effect prophylaxis
     Dosage: UNK
     Route: 065
     Dates: start: 20221215
  11. ESOMEPRAZOLE [Concomitant]
     Active Substance: ESOMEPRAZOLE
     Indication: Chemotherapy side effect prophylaxis
     Dosage: UNK
     Route: 065
     Dates: start: 20221215

REACTIONS (1)
  - Infusion related reaction [Recovered/Resolved]

NARRATIVE: CASE EVENT DATE: 20230124
